FAERS Safety Report 10102290 (Version 1)
Quarter: 2014Q2

REPORT INFORMATION
  Report Type: Spontaneous
  Country: US (occurrence: US)
  Receive Date: 20140424
  Receipt Date: 20140424
  Transmission Date: 20141212
  Serious: No
  Sender: FDA-Public Use
  Company Number: US-009507513-1404USA012327

PATIENT
  Age: 52 Year
  Sex: Male

DRUGS (1)
  1. DR. SCHOLL^S CLEAR AWAY PLANTAR PATCH [Suspect]
     Indication: SKIN PAPILLOMA
     Dosage: UNK, UNKNOWN
     Route: 061

REACTIONS (3)
  - Swelling [Recovering/Resolving]
  - Erythema [Recovering/Resolving]
  - Pain [Recovering/Resolving]
